FAERS Safety Report 16447486 (Version 3)
Quarter: 2019Q3

REPORT INFORMATION
  Report Type: Spontaneous
  Country: TR (occurrence: TR)
  Receive Date: 20190619
  Receipt Date: 20190719
  Transmission Date: 20191004
  Serious: Yes (Other)
  Sender: FDA-Public Use
  Company Number: PHHY2019TR137477

PATIENT
  Age: 43 Year
  Sex: Female

DRUGS (4)
  1. SANDIMMUN NEORAL [Suspect]
     Active Substance: CYCLOSPORINE
     Dosage: 200 MG, QD
     Route: 065
  2. SANDIMMUN NEORAL [Suspect]
     Active Substance: CYCLOSPORINE
     Indication: PSORIASIS
     Dosage: 300 MG, QD
     Route: 065
  3. SANDIMMUN NEORAL [Suspect]
     Active Substance: CYCLOSPORINE
     Dosage: 100 MG, BID (100MG IN THE MORNING AND 100MG IN THE EVENING)
     Route: 065
     Dates: start: 20190425
  4. SANDIMMUN NEORAL [Suspect]
     Active Substance: CYCLOSPORINE
     Dosage: 300 MG, QD (300 MG IN A DAY 2-2)
     Route: 065

REACTIONS (6)
  - Myocardial infarction [Unknown]
  - Product supply issue [Unknown]
  - Hypertrichosis [Unknown]
  - Psoriasis [Unknown]
  - Weight increased [Unknown]
  - Rash generalised [Unknown]
